FAERS Safety Report 7545602-9 (Version None)
Quarter: 2011Q2

REPORT INFORMATION
  Report Type: 
  Country: None (occurrence: None)
  Receive Date: 20110614
  Receipt Date: 20110608
  Transmission Date: 20111010
  Serious: Yes (Death)
  Sender: FDA-Public Use
  Company Number: FR-ASTELLAS-2011US002865

PATIENT
  Age: 65 Year
  Sex: Male

DRUGS (10)
  1. VALACYCLOVIR [Concomitant]
     Indication: DYSPNOEA
     Dosage: UNK
     Route: 065
  2. AMBISOME [Suspect]
     Indication: FUNGAL INFECTION
     Dosage: 450 MG, UID/QD
     Route: 065
     Dates: start: 20090201
  3. CEFTAZIDIME [Concomitant]
     Indication: DYSPNOEA
     Dosage: UNK
     Route: 065
  4. CHEMOTHERAPEUTICS NOS [Concomitant]
     Indication: PRECURSOR T-LYMPHOBLASTIC LYMPHOMA/LEUKAEMIA
     Dosage: UNK
     Route: 065
  5. CIPROFLOXACIN [Concomitant]
     Indication: PYREXIA
  6. VALACYCLOVIR [Concomitant]
     Indication: PYREXIA
  7. CASPOFUNGIN ACETATE [Concomitant]
     Indication: FUNGAL INFECTION
     Dosage: UNK
     Route: 065
  8. CIPROFLOXACIN [Concomitant]
     Indication: DYSPNOEA
     Dosage: UNK
     Route: 065
  9. VORICONAZOLE [Concomitant]
     Indication: FUNGAL INFECTION
     Dosage: 350 MG, BID
     Route: 065
  10. CEFTAZIDIME [Concomitant]
     Indication: PYREXIA

REACTIONS (3)
  - DRUG INEFFECTIVE [None]
  - MULTI-ORGAN FAILURE [None]
  - FUNGAL INFECTION [None]
